FAERS Safety Report 8613280 (Version 5)
Quarter: 2013Q1

REPORT INFORMATION
  Report Type: Report from Study
  Country: US (occurrence: US)
  Receive Date: 20120613
  Receipt Date: 20130318
  Transmission Date: 20140127
  Serious: Yes (Life-Threatening, Hospitalization, Other)
  Sender: FDA-Public Use
  Company Number: US-ACTELION-A-US2012-65565

PATIENT
  Age: 67 Year
  Sex: Female

DRUGS (6)
  1. TRACLEER [Suspect]
     Indication: PULMONARY ARTERIAL HYPERTENSION
     Dosage: 125 MG, BID
     Route: 048
  2. ADCIRCA [Concomitant]
  3. COUMADIN [Concomitant]
  4. REVATIO [Concomitant]
  5. CALCIUM CHANNEL BLOCKERS [Concomitant]
  6. PRADAXA [Concomitant]

REACTIONS (5)
  - Respiratory arrest [Unknown]
  - Pulmonary arterial hypertension [Unknown]
  - Respiratory failure [Recovering/Resolving]
  - Dyspnoea [Recovering/Resolving]
  - Asthenia [Recovering/Resolving]
